FAERS Safety Report 16035524 (Version 1)
Quarter: 2019Q1

REPORT INFORMATION
  Report Type: Spontaneous
  Country: US (occurrence: US)
  Receive Date: 20190206
  Receipt Date: 20190206
  Transmission Date: 20190418
  Serious: Yes (Other)
  Sender: FDA-Public Use
  Company Number: None

PATIENT
  Age: 75 Year
  Sex: Male
  Weight: 99.79 kg

DRUGS (4)
  1. BENAZEPRIL [Concomitant]
     Active Substance: BENAZEPRIL HYDROCHLORIDE
  2. AMLODIPINE [Concomitant]
     Active Substance: AMLODIPINE BESYLATE
  3. ALCLOMETASONE DIPROPIONATE OINTMENT [Concomitant]
  4. TAMSULOSIN BRAND: FLOMAX [Suspect]
     Active Substance: TAMSULOSIN
     Indication: PROSTATOMEGALY
     Dosage: ?          QUANTITY:4 MG MILLIGRAM(S);?
     Route: 048
     Dates: start: 20180922, end: 20180924

REACTIONS (4)
  - Rash [None]
  - Eye swelling [None]
  - Pruritus [None]
  - Swelling face [None]

NARRATIVE: CASE EVENT DATE: 20180923
